FAERS Safety Report 8552301-3 (Version None)
Quarter: 2012Q3

REPORT INFORMATION
  Report Type: 
  Country: None (occurrence: None)
  Receive Date: 20120723
  Receipt Date: 20120723
  Transmission Date: 20120928
  Serious: No
  Sender: FDA-Public Use
  Company Number: None

PATIENT
  Age: 59 Year
  Sex: Male
  Weight: 77.2 kg

DRUGS (2)
  1. PEGINTERFERON ALFA-2A [Suspect]
     Indication: HEPATITIS C
     Dosage: ML
     Dates: start: 20120103
  2. BOCEPREVIR [Suspect]
     Indication: HEPATITIS C
     Dosage: MG PO
     Route: 048
     Dates: start: 20120203

REACTIONS (3)
  - ANAEMIA [None]
  - LEUKOPENIA [None]
  - NEUTROPENIA [None]
